FAERS Safety Report 4749512-1 (Version None)
Quarter: 2005Q3

REPORT INFORMATION
  Report Type: 
  Country: None (occurrence: None)
  Receive Date: 20050822
  Receipt Date: 20040609
  Transmission Date: 20060218
  Serious: Yes (Other)
  Sender: FDA-Public Use
  Company Number: 2004UW11951

PATIENT
  Age: 64 Year
  Sex: Female

DRUGS (2)
  1. IRESSA [Suspect]
     Indication: NON-SMALL CELL LUNG CANCER
     Route: 048
     Dates: start: 20040101
  2. IRESSA [Suspect]
     Route: 048

REACTIONS (11)
  - ABDOMINAL PAIN [None]
  - ATROPHIC VULVOVAGINITIS [None]
  - BLOOD CREATININE INCREASED [None]
  - BLOOD UREA INCREASED [None]
  - DIARRHOEA [None]
  - NODULE [None]
  - PSORIASIS [None]
  - RASH [None]
  - RED BLOOD CELL COUNT DECREASED [None]
  - SINUSITIS [None]
  - VAGINAL HAEMORRHAGE [None]
